FAERS Safety Report 15997968 (Version 1)
Quarter: 2019Q1

REPORT INFORMATION
  Report Type: Report from Study
  Country: IT (occurrence: IT)
  Receive Date: 20190222
  Receipt Date: 20190222
  Transmission Date: 20190418
  Serious: Yes (Other)
  Sender: FDA-Public Use
  Company Number: IT-GILEAD-2019-0392377

PATIENT
  Age: 65 Year
  Sex: Female

DRUGS (7)
  1. DILATREND [Concomitant]
     Active Substance: CARVEDILOL
     Indication: HYPERTENSION
  2. EUTIROX [Concomitant]
     Active Substance: LEVOTHYROXINE SODIUM
  3. RANOLAZINE. [Suspect]
     Active Substance: RANOLAZINE
     Indication: ANGINA PECTORIS
     Dosage: 375 MG, BID
     Route: 048
     Dates: start: 20181228, end: 20190110
  4. MICARDIS [Concomitant]
     Active Substance: TELMISARTAN
  5. CARDIOASPIRIN [Concomitant]
     Active Substance: ASPIRIN
  6. TOTALIP [Concomitant]
     Active Substance: ATORVASTATIN
  7. ELOPRAM [CITALOPRAM HYDROBROMIDE] [Concomitant]

REACTIONS (5)
  - Eyelid oedema [Recovering/Resolving]
  - Conjunctival hyperaemia [Recovered/Resolved]
  - Swelling face [Recovering/Resolving]
  - Pain in extremity [Recovered/Resolved]
  - Conjunctivitis [Recovered/Resolved]

NARRATIVE: CASE EVENT DATE: 20190109
